FAERS Safety Report 5370958-5 (Version None)
Quarter: 2007Q2

REPORT INFORMATION
  Report Type: 
  Country: None (occurrence: None)
  Receive Date: 20070626
  Receipt Date: 20070620
  Transmission Date: 20071010
  Serious: Yes (Hospitalization)
  Sender: FDA-Public Use
  Company Number: JP-BOEHRINGER INGELHEIM PHARMACEUTICALS, INC.-2007-BP-09060NB

PATIENT
  Age: 55 Year
  Sex: Male

DRUGS (8)
  1. CATAPRES [Suspect]
     Indication: SCHIZOPHRENIA
     Route: 048
  2. HALOPERIDOL INTENSOL [Concomitant]
     Indication: SCHIZOPHRENIA
     Route: 048
  3. AMANTADINE HCL [Concomitant]
     Indication: SCHIZOPHRENIA
     Route: 048
  4. TRIHEXYPHENIDYL HYDROCHLORIDE [Concomitant]
     Indication: SCHIZOPHRENIA
     Route: 048
  5. CLONAZEPAM [Concomitant]
     Indication: SCHIZOPHRENIA
     Route: 048
  6. LEVOMEPROMAZINE MALEATE [Concomitant]
     Indication: SCHIZOPHRENIA
     Route: 048
  7. CHLORPROMAZINE HCL [Concomitant]
     Indication: SCHIZOPHRENIA
     Route: 048
  8. PHENOBARBITAL TAB [Concomitant]
     Indication: SCHIZOPHRENIA
     Route: 048

REACTIONS (1)
  - NEUROLEPTIC MALIGNANT SYNDROME [None]
